FAERS Safety Report 5965450-0 (Version None)
Quarter: 2008Q4

REPORT INFORMATION
  Report Type: 
  Country: None (occurrence: None)
  Receive Date: 20081125
  Receipt Date: 20081101
  Transmission Date: 20090506
  Serious: No
  Sender: FDA-Public Use
  Company Number: US-AMGEN-KDL316903

PATIENT
  Sex: Female

DRUGS (4)
  1. ENBREL [Suspect]
     Indication: RHEUMATOID ARTHRITIS
     Route: 058
     Dates: start: 20051101
  2. ENBREL [Suspect]
     Indication: PSORIASIS
  3. METHOTREXATE [Concomitant]
  4. INFLUENZA VACCINE [Concomitant]

REACTIONS (8)
  - CHILLS [None]
  - DRUG INEFFECTIVE [None]
  - LUNG INFILTRATION [None]
  - NAUSEA [None]
  - PAIN [None]
  - PSORIASIS [None]
  - PYREXIA [None]
  - VOMITING [None]
